FAERS Safety Report 9000454 (Version 1)
Quarter: 2013Q1

REPORT INFORMATION
  Report Type: Spontaneous
  Country: US (occurrence: None)
  Receive Date: 20130102
  Receipt Date: 20130102
  Transmission Date: 20140127
  Serious: Yes (Death, Hospitalization)
  Sender: FDA-Public Use
  Company Number: None

PATIENT
  Age: 68 Year
  Sex: Male
  Weight: 107.3 kg

DRUGS (2)
  1. CIPROFLOXACIN [Suspect]
     Route: 048
  2. ZOLPIDEM [Suspect]
     Indication: SLEEP DISORDER THERAPY
     Route: 048
     Dates: start: 20111014

REACTIONS (7)
  - Dyspnoea exertional [None]
  - Epistaxis [None]
  - Mouth haemorrhage [None]
  - Decreased appetite [None]
  - Hypersomnia [None]
  - Cough [None]
  - Haemorrhage [None]
